FAERS Safety Report 17550659 (Version 1)
Quarter: 2020Q1

REPORT INFORMATION
  Report Type: Spontaneous
  Country: US (occurrence: US)
  Receive Date: 20200317
  Receipt Date: 20200317
  Transmission Date: 20200409
  Serious: No
  Sender: FDA-Public Use
  Company Number: US-009507513-2003USA006242

PATIENT
  Sex: Female

DRUGS (1)
  1. GANIRELIX ACETATE INJECTION [Suspect]
     Active Substance: GANIRELIX ACETATE
     Indication: INFERTILITY FEMALE
     Dosage: 250 MCG DAILY
     Route: 058
     Dates: start: 20200207

REACTIONS (2)
  - Injection site erythema [Unknown]
  - Injection site irritation [Unknown]

NARRATIVE: CASE EVENT DATE: 2020
